FAERS Safety Report 4557778-6 (Version None)
Quarter: 2005Q1

REPORT INFORMATION
  Report Type: 
  Country: None (occurrence: None)
  Receive Date: 20050103
  Receipt Date: 20041118
  Transmission Date: 20050727
  Serious: Yes (Other)
  Sender: FDA-Public Use
  Company Number: 2004UW15455

PATIENT
  Age: 75 Year
  Sex: Female
  Weight: 56.246 kg

DRUGS (6)
  1. CRESTOR [Suspect]
     Indication: LIPIDS INCREASED
     Dosage: 10 MG QD PO
     Route: 048
     Dates: start: 20040504, end: 20040610
  2. SINGULAIR [Concomitant]
  3. SYNTHROID [Concomitant]
  4. COUMADIN [Concomitant]
  5. ALBUTEROL [Concomitant]
  6. NEXIUM [Concomitant]

REACTIONS (6)
  - DYSPNOEA [None]
  - FATIGUE [None]
  - FEELING ABNORMAL [None]
  - NAUSEA [None]
  - RASH PRURITIC [None]
  - WHEEZING [None]
